FAERS Safety Report 12280343 (Version 1)
Quarter: 2016Q2

REPORT INFORMATION
  Report Type: Report from Study
  Country: FR (occurrence: FR)
  Receive Date: 20160419
  Receipt Date: 20160419
  Transmission Date: 20160815
  Serious: Yes (Other)
  Sender: FDA-Public Use
  Company Number: FR-ROCHE-1031875

PATIENT

DRUGS (5)
  1. BEVACIZUMAB [Suspect]
     Active Substance: BEVACIZUMAB
     Indication: BREAST CANCER
     Route: 042
  2. EPIRUBICIN [Suspect]
     Active Substance: EPIRUBICIN
     Indication: BREAST CANCER
     Route: 042
  3. FLUOROURACIL. [Suspect]
     Active Substance: FLUOROURACIL
     Indication: BREAST CANCER
     Route: 042
  4. CYCLOPHOSPHAMIDE. [Suspect]
     Active Substance: CYCLOPHOSPHAMIDE
     Indication: BREAST CANCER
     Route: 042
  5. DOCETAXEL. [Suspect]
     Active Substance: DOCETAXEL
     Indication: BREAST CANCER
     Route: 042

REACTIONS (29)
  - Radius fracture [Unknown]
  - Skin toxicity [Unknown]
  - Oedema [Unknown]
  - Vomiting [Unknown]
  - Neuropathy peripheral [Unknown]
  - Liver function test abnormal [Unknown]
  - Impaired healing [Unknown]
  - Asthenia [Unknown]
  - Cardiotoxicity [Unknown]
  - Rash [Unknown]
  - Proteinuria [Unknown]
  - Peritonitis [Unknown]
  - Nausea [Unknown]
  - Anaemia [Unknown]
  - Pyrexia [Unknown]
  - Febrile neutropenia [Unknown]
  - Thrombocytopenia [Unknown]
  - Nail toxicity [Unknown]
  - Hypertension [Unknown]
  - Pyelonephritis [Unknown]
  - Fungal infection [Unknown]
  - Palmar-plantar erythrodysaesthesia syndrome [Unknown]
  - Neutropenia [Unknown]
  - Mucosal inflammation [Unknown]
  - Major depression [Unknown]
  - Diarrhoea [Unknown]
  - Musculoskeletal pain [Unknown]
  - Infection [Unknown]
  - Haemorrhoids [Unknown]
